FAERS Safety Report 17062460 (Version 4)
Quarter: 2022Q4

REPORT INFORMATION
  Report Type: Other
  Country: GB (occurrence: GB)
  Receive Date: 20191122
  Receipt Date: 20221021
  Transmission Date: 20230113
  Serious: Yes (Other)
  Sender: FDA-Public Use
  Company Number: RU-SA-2019SA134686

PATIENT

DRUGS (9)
  1. MYLERAN [Suspect]
     Active Substance: BUSULFAN
     Indication: Bone marrow conditioning regimen
     Dosage: 50 MG, UNK
     Route: 065
  2. MYLERAN [Suspect]
     Active Substance: BUSULFAN
     Indication: Acute myeloid leukaemia
     Dosage: UNK
     Route: 065
  3. MYLERAN [Suspect]
     Active Substance: BUSULFAN
     Indication: Stem cell transplant
     Dosage: FOR 2 DAYS
     Route: 065
  4. ALEMTUZUMAB [Suspect]
     Active Substance: ALEMTUZUMAB
     Indication: Bone marrow conditioning regimen
     Dosage: 50 MG, OVER 2 DAYS
     Route: 041
  5. ALEMTUZUMAB [Suspect]
     Active Substance: ALEMTUZUMAB
     Indication: Acute myeloid leukaemia
     Dosage: UNK
     Route: 065
  6. ALEMTUZUMAB [Suspect]
     Active Substance: ALEMTUZUMAB
     Indication: Stem cell transplant
  7. FLUDARABINE PHOSPHATE [Suspect]
     Active Substance: FLUDARABINE PHOSPHATE
     Indication: Bone marrow conditioning regimen
     Dosage: 50 MG, UNK
     Route: 065
  8. FLUDARABINE PHOSPHATE [Suspect]
     Active Substance: FLUDARABINE PHOSPHATE
     Indication: Stem cell transplant
     Dosage: UNK
     Route: 065
  9. FLUDARABINE PHOSPHATE [Suspect]
     Active Substance: FLUDARABINE PHOSPHATE
     Indication: Acute myeloid leukaemia
     Dosage: FOR 2 DAYS
     Route: 065

REACTIONS (10)
  - Off label use [Unknown]
  - Bacterial infection [Recovered/Resolved]
  - Enterobacter bacteraemia [Recovered/Resolved]
  - Escherichia bacteraemia [Recovered/Resolved]
  - Diarrhoea [Recovered/Resolved]
  - Graft versus host disease in skin [Not Recovered/Not Resolved]
  - Clostridium difficile infection [Recovered/Resolved]
  - Nausea [Recovered/Resolved]
  - Pyrexia [Recovered/Resolved]
  - Diarrhoea infectious [Recovered/Resolved]
